FAERS Safety Report 14355175 (Version 1)
Quarter: 2018Q1

REPORT INFORMATION
  Report Type: Spontaneous
  Country: US (occurrence: US)
  Receive Date: 20180104
  Receipt Date: 20180104
  Transmission Date: 20180509
  Serious: No
  Sender: FDA-Public Use
  Company Number: None

PATIENT
  Age: 71 Year
  Sex: Male
  Weight: 76.5 kg

DRUGS (16)
  1. COQ10 [Concomitant]
     Active Substance: UBIDECARENONE
  2. EPA [Concomitant]
  3. METHYLFOLATE [Concomitant]
     Active Substance: LEVOMEFOLATE CALCIUM
  4. E [Concomitant]
  5. C [Concomitant]
  6. MELATONIN [Concomitant]
     Active Substance: MELATONIN
  7. TRIAZOLAM .25MG [Suspect]
     Active Substance: TRIAZOLAM
     Indication: ANXIETY
     Dosage: ?          QUANTITY:4 TABLET(S);OTHER FREQUENCY:1;?
     Route: 048
     Dates: start: 20171220, end: 20171220
  8. LISONPRIL [Concomitant]
     Active Substance: LISINOPRIL
  9. CALCIUM [Concomitant]
     Active Substance: CALCIUM
  10. ASPIRIN. [Concomitant]
     Active Substance: ASPIRIN
  11. A AND D NOS [Concomitant]
     Active Substance: DIMETHICONE\ZINC OXIDE OR PETROLATUM
  12. BIPAP [Concomitant]
     Active Substance: DEVICE
  13. TAMSULOSIN [Concomitant]
     Active Substance: TAMSULOSIN
  14. AMLODIPINE [Concomitant]
     Active Substance: AMLODIPINE BESYLATE
  15. MAGNESIUM [Concomitant]
     Active Substance: MAGNESIUM
  16. MULTI [Concomitant]

REACTIONS (2)
  - Feeling abnormal [None]
  - Vomiting [None]

NARRATIVE: CASE EVENT DATE: 20171220
